FAERS Safety Report 19628566 (Version 10)
Quarter: 2022Q1

REPORT INFORMATION
  Report Type: Other
  Country: CA (occurrence: None)
  Receive Date: 20210729
  Receipt Date: 20220208
  Transmission Date: 20220423
  Serious: Yes (Hospitalization)
  Sender: FDA-Public Use
  Company Number: CA-ROCHE-2865919

PATIENT
  Sex: Male

DRUGS (4)
  1. OCREVUS [Suspect]
     Active Substance: OCRELIZUMAB
     Indication: Primary progressive multiple sclerosis
     Dosage: THEN 600 MG EVERY 6 MONTH
     Route: 042
     Dates: start: 20181025
  2. OCREVUS [Suspect]
     Active Substance: OCRELIZUMAB
     Dosage: 600 MG EVERY 6 MONTH
     Route: 042
  3. PFIZER-BIONTECH COVID-19 VACCINE [Concomitant]
     Active Substance: TOZINAMERAN
     Dosage: FIRST DOSE
     Dates: start: 20211023
  4. PFIZER-BIONTECH COVID-19 VACCINE [Concomitant]
     Active Substance: TOZINAMERAN
     Dosage: 2ND DOSE
     Dates: start: 20211120

REACTIONS (6)
  - Nephrolithiasis [Recovered/Resolved]
  - Urinary tract infection [Recovered/Resolved]
  - Blood pressure abnormal [Recovered/Resolved]
  - Bradykinesia [Not Recovered/Not Resolved]
  - Fatigue [Unknown]
  - Septic shock [Recovered/Resolved]
